FAERS Safety Report 5474416-9 (Version None)
Quarter: 2007Q3

REPORT INFORMATION
  Report Type: 
  Country: None (occurrence: None)
  Receive Date: 20070928
  Receipt Date: 20060727
  Transmission Date: 20080115
  Serious: Yes (Hospitalization)
  Sender: FDA-Public Use
  Company Number: 001#2#2006-00303

PATIENT
  Age: 71 Year
  Sex: Female

DRUGS (5)
  1. NEUPRO [Suspect]
     Indication: PARKINSON'S DISEASE
     Dosage: 4MG/24H (4 MG/24H 1 IN 1 DAYS(S); TRANSDERMAL
     Route: 062
  2. ROPINIROLE HYDROCHLORIDE (ROPINIROLE HYDROCHLORIDE) [Concomitant]
  3. MADOPAR (BENSERAZIDE HYDROCHLORIDE, LEVODOPA) [Concomitant]
  4. ENTACAPONE (ENTACAPONE) [Concomitant]
  5. MIRTAZAPINE [Concomitant]

REACTIONS (4)
  - APPLICATION SITE ERYTHEMA [None]
  - APPLICATION SITE PRURITUS [None]
  - CONDITION AGGRAVATED [None]
  - PARKINSON'S DISEASE [None]
